FAERS Safety Report 10195358 (Version 1)
Quarter: 2014Q2

REPORT INFORMATION
  Report Type: Spontaneous
  Country: SE (occurrence: SE)
  Receive Date: 20140526
  Receipt Date: 20140526
  Transmission Date: 20141212
  Serious: Yes (Other)
  Sender: FDA-Public Use
  Company Number: SE-UCBSA-121794

PATIENT
  Sex: Female

DRUGS (2)
  1. CIMZIA [Suspect]
     Indication: RHEUMATOID ARTHRITIS
     Dosage: MONOTHERAPY
  2. NO CONCOMITANT MEDICATION [Concomitant]

REACTIONS (2)
  - Urinary tract neoplasm [Unknown]
  - Drug ineffective [Unknown]
